FAERS Safety Report 19009947 (Version 2)
Quarter: 2021Q1

REPORT INFORMATION
  Report Type: Spontaneous
  Country: GB (occurrence: GB)
  Receive Date: 20210316
  Receipt Date: 20210331
  Transmission Date: 20210420
  Serious: Yes (Hospitalization, Disabling, Other)
  Sender: FDA-Public Use
  Company Number: GB-AUROBINDO-AUR-APL-2021-010316

PATIENT
  Age: 52 Year
  Sex: Female
  Weight: 83 kg

DRUGS (6)
  1. DESUNIN [Concomitant]
     Active Substance: CHOLECALCIFEROL
     Indication: ILL-DEFINED DISORDER
     Dosage: 1 DOSAGE FORM, DAILY
     Route: 065
     Dates: start: 20171207
  2. DULOXETINE. [Suspect]
     Active Substance: DULOXETINE
     Indication: ILL-DEFINED DISORDER
     Dosage: UNK
     Route: 065
     Dates: start: 20210304
  3. DULOXETINE. [Suspect]
     Active Substance: DULOXETINE
     Indication: PAIN
  4. DULOXETINE. [Concomitant]
     Active Substance: DULOXETINE
     Indication: ILL-DEFINED DISORDER
     Dosage: 1 DOSAGE FORM, DAILY FOR PAIN
     Route: 065
     Dates: start: 20200928
  5. WARFARIN SODIUM. [Concomitant]
     Active Substance: WARFARIN SODIUM
     Indication: ILL-DEFINED DISORDER
     Dosage: UNK UNK, DAILY
     Route: 065
     Dates: start: 20200612
  6. LEVOTHYROXINE. [Concomitant]
     Active Substance: LEVOTHYROXINE
     Indication: ILL-DEFINED DISORDER
     Dosage: 3 DOSAGE FORM, EACH MORNING
     Route: 065
     Dates: start: 20191107

REACTIONS (1)
  - Adverse drug reaction [Recovered/Resolved]

NARRATIVE: CASE EVENT DATE: 20210304
